FAERS Safety Report 10160730 (Version 3)
Quarter: 2014Q2

REPORT INFORMATION
  Report Type: Spontaneous
  Country: JP (occurrence: JP)
  Receive Date: 20140508
  Receipt Date: 20140610
  Transmission Date: 20141212
  Serious: Yes (Life-Threatening, Hospitalization)
  Sender: FDA-Public Use
  Company Number: JP-BRISTOL-MYERS SQUIBB COMPANY-20721163

PATIENT
  Age: 76 Year
  Sex: Female
  Weight: 48 kg

DRUGS (8)
  1. ERBITUX SOLN FOR INF 5MG/ML [Suspect]
     Indication: RECTAL CANCER
     Dosage: BIWEEKLY
     Route: 041
     Dates: start: 20140402, end: 20140402
  2. TOPOTECIN [Suspect]
     Indication: RECTAL CANCER
     Dosage: INFUSION,IV BIWEEKLY
     Route: 041
     Dates: start: 20140402, end: 20140402
  3. 5-FLUOROURACIL [Suspect]
     Indication: RECTAL CANCER
     Dosage: INTRAVENOUS DRIP,3410MG
     Route: 040
     Dates: start: 20130724, end: 20140402
  4. ISOVORIN [Suspect]
     Indication: RECTAL CANCER
     Dosage: IV BIWEEKLY
     Route: 041
     Dates: start: 20130724, end: 20140402
  5. IRINOTECAN [Concomitant]
     Indication: COLON CANCER
     Route: 042
  6. FLUOROURACIL [Concomitant]
     Indication: COLON CANCER
     Route: 042
  7. CALCIUM FOLINATE [Concomitant]
     Indication: COLON CANCER
     Route: 042
  8. DECADRON [Concomitant]
     Indication: ANTIEMETIC SUPPORTIVE CARE

REACTIONS (3)
  - Gastrointestinal perforation [Recovering/Resolving]
  - Febrile neutropenia [Recovered/Resolved]
  - Diarrhoea [Recovered/Resolved]
